FAERS Safety Report 24330038 (Version 3)
Quarter: 2025Q3

REPORT INFORMATION
  Report Type: Spontaneous
  Country: US (occurrence: US)
  Receive Date: 20240917
  Receipt Date: 20250810
  Transmission Date: 20251021
  Serious: No
  Sender: ALEXION PHARMACEUTICALS
  Company Number: 2024A201006

PATIENT
  Sex: Male

DRUGS (2)
  1. BREZTRI [Suspect]
     Active Substance: BUDESONIDE\FORMOTEROL\GLYCOPYRROLATE
  2. SYMBICORT [Suspect]
     Active Substance: BUDESONIDE\FORMOTEROL FUMARATE DIHYDRATE

REACTIONS (16)
  - Emphysema [Unknown]
  - Weight decreased [Unknown]
  - Rash [Unknown]
  - Tremor [Unknown]
  - Pruritus [Unknown]
  - Memory impairment [Unknown]
  - Drug hypersensitivity [Unknown]
  - Illness [Unknown]
  - Functional gastrointestinal disorder [Unknown]
  - Fatigue [Unknown]
  - Decreased activity [Unknown]
  - Alopecia [Unknown]
  - Device delivery system issue [Unknown]
  - Product dose omission issue [Unknown]
  - Wrong technique in product usage process [Unknown]
  - Device use issue [Unknown]
